FAERS Safety Report 14152199 (Version 3)
Quarter: 2018Q1

REPORT INFORMATION
  Report Type: Spontaneous
  Country: IT (occurrence: IT)
  Receive Date: 20171102
  Receipt Date: 20180323
  Transmission Date: 20180508
  Serious: Yes (Hospitalization)
  Sender: FDA-Public Use
  Company Number: IT-ROCHE-2015527

PATIENT
  Age: 50 Year
  Sex: Female
  Weight: 57 kg

DRUGS (7)
  1. AVASTIN [Suspect]
     Active Substance: BEVACIZUMAB
     Indication: OVARIAN CANCER
     Route: 041
     Dates: start: 20170125, end: 20170822
  2. TIVICAY [Concomitant]
     Active Substance: DOLUTEGRAVIR SODIUM
     Indication: ANTIRETROVIRAL THERAPY
     Route: 065
  3. CARBOPLATIN. [Concomitant]
     Active Substance: CARBOPLATIN
  4. DESCOVY [Concomitant]
     Active Substance: EMTRICITABINE\TENOFOVIR ALAFENAMIDE FUMARATE
     Indication: ANTIRETROVIRAL THERAPY
     Dosage: FORM STRENGTH: 200 MG/10MG
     Route: 065
  5. NOBISTAR [Concomitant]
     Active Substance: NEBIVOLOL HYDROCHLORIDE
     Indication: HYPERTENSION
     Route: 065
  6. AVASTIN [Suspect]
     Active Substance: BEVACIZUMAB
     Route: 042
  7. PACLITAXEL. [Concomitant]
     Active Substance: PACLITAXEL

REACTIONS (1)
  - Monoparesis [Recovered/Resolved]

NARRATIVE: CASE EVENT DATE: 20170902
